FAERS Safety Report 10200749 (Version 1)
Quarter: 2014Q2

REPORT INFORMATION
  Report Type: Spontaneous
  Country: US (occurrence: US)
  Receive Date: 20140528
  Receipt Date: 20140528
  Transmission Date: 20141212
  Serious: No
  Sender: FDA-Public Use
  Company Number: US-009507513-1405USA008996

PATIENT
  Age: 24 Year
  Sex: Female
  Weight: 113.38 kg

DRUGS (6)
  1. NEXPLANON [Suspect]
     Indication: CONTRACEPTION
     Dosage: UNK
     Route: 059
     Dates: start: 20131001
  2. BENZONATATE [Concomitant]
     Dosage: UNK
  3. CEFDINIR [Concomitant]
     Dosage: UNK
  4. PANTOPRAZOLE [Concomitant]
     Dosage: UNK
  5. ZYRTEC [Concomitant]
     Dosage: UNK
  6. METFORMIN [Concomitant]
     Dosage: UNK

REACTIONS (3)
  - Hypomenorrhoea [Unknown]
  - Menstruation delayed [Unknown]
  - Menstruation delayed [Unknown]
